FAERS Safety Report 13757562 (Version 1)
Quarter: 2017Q3

REPORT INFORMATION
  Report Type: Spontaneous
  Country: US (occurrence: US)
  Receive Date: 20170717
  Receipt Date: 20170717
  Transmission Date: 20171127
  Serious: No
  Sender: FDA-Public Use
  Company Number: US-ENDO PHARMACEUTICALS INC-2016-007014

PATIENT
  Age: 75 Year
  Sex: Female
  Weight: 72.64 kg

DRUGS (2)
  1. NYSTATIN CREAM [Suspect]
     Active Substance: NYSTATIN
     Route: 061
     Dates: start: 20140214
  2. NYSTATIN CREAM [Suspect]
     Active Substance: NYSTATIN
     Indication: TINEA INFECTION
     Route: 061
     Dates: start: 20160928

REACTIONS (3)
  - Condition aggravated [Not Recovered/Not Resolved]
  - Skin infection [Not Recovered/Not Resolved]
  - Body tinea [Not Recovered/Not Resolved]

NARRATIVE: CASE EVENT DATE: 201609
